FAERS Safety Report 16780657 (Version 2)
Quarter: 2019Q3

REPORT INFORMATION
  Report Type: Spontaneous
  Country: US (occurrence: US)
  Receive Date: 20190906
  Receipt Date: 20190919
  Transmission Date: 20191005
  Serious: No
  Sender: FDA-Public Use
  Company Number: US-SA-2019SA249373

PATIENT
  Age: 72 Year
  Sex: Female

DRUGS (1)
  1. KEVZARA [Suspect]
     Active Substance: SARILUMAB
     Dosage: 200 MG, QOW
     Route: 058
     Dates: start: 20190509

REACTIONS (5)
  - Hypersensitivity [Not Recovered/Not Resolved]
  - Oral mucosal blistering [Recovered/Resolved]
  - Oropharyngeal pain [Recovered/Resolved]
  - Proctalgia [Recovered/Resolved]
  - Diarrhoea [Recovered/Resolved]
